FAERS Safety Report 8087908-3 (Version None)
Quarter: 2012Q1

REPORT INFORMATION
  Report Type: 
  Country: None (occurrence: None)
  Receive Date: 20120128
  Receipt Date: 20110414
  Transmission Date: 20120608
  Serious: No
  Sender: FDA-Public Use
  Company Number: US-ABBOTT-11P-163-0718261-00

PATIENT
  Sex: Female
  Weight: 77.18 kg

DRUGS (6)
  1. NORTRIPTYLINE HCL [Concomitant]
     Indication: DEPRESSION
  2. BUPROPION HYDROCHLORIDE [Concomitant]
     Indication: DEPRESSION
     Route: 048
  3. NORTRIPTYLINE HCL [Concomitant]
     Indication: MIGRAINE
     Route: 048
  4. HUMIRA [Suspect]
     Indication: PSORIATIC ARTHROPATHY
     Route: 058
     Dates: start: 20100801
  5. ATENOLOL [Concomitant]
     Indication: ARRHYTHMIA
     Route: 048
  6. CITALOPRAM [Concomitant]
     Indication: DEPRESSION
     Route: 048

REACTIONS (2)
  - DRUG EFFECT DECREASED [None]
  - PAIN [None]
